FAERS Safety Report 5358445-1 (Version None)
Quarter: 2007Q2

REPORT INFORMATION
  Report Type: 
  Country: None (occurrence: None)
  Receive Date: 20070601
  Receipt Date: 20070205
  Transmission Date: 20071010
  Serious: Yes (Other)
  Sender: FDA-Public Use
  Company Number: PHEH2006US14258

PATIENT
  Age: 70 Year
  Sex: Female

DRUGS (2)
  1. ENABLEX [Suspect]
     Indication: URGE INCONTINENCE
     Dosage: 15 MG, QD
     Dates: start: 20061108
  2. ANTIHYPERTENSIVES (NO INGREDIENTS/SUBSTANCES [Concomitant]

REACTIONS (1)
  - BLOOD PRESSURE INCREASED [None]
